FAERS Safety Report 5695728-X (Version None)
Quarter: 2008Q2

REPORT INFORMATION
  Report Type: 
  Country: None (occurrence: None)
  Receive Date: 20080403
  Receipt Date: 20080326
  Transmission Date: 20081010
  Serious: Yes (Hospitalization)
  Sender: FDA-Public Use
  Company Number: WAES 0801DNK00014

PATIENT
  Age: 77 Year
  Sex: Female

DRUGS (13)
  1. CAP VORINOSTAT [Suspect]
     Indication: OVARIAN EPITHELIAL CANCER RECURRENT
     Dosage: 400 MG/DAILY, PO, 300 MG/DAILY, 300 MG/DAILYPO
     Route: 048
     Dates: start: 20080118, end: 20080128
  2. CAP VORINOSTAT [Suspect]
     Indication: OVARIAN EPITHELIAL CANCER RECURRENT
     Dosage: 400 MG/DAILY, PO, 300 MG/DAILY, 300 MG/DAILYPO
     Route: 048
     Dates: start: 20080211, end: 20080225
  3. CAP VORINOSTAT [Suspect]
     Indication: OVARIAN EPITHELIAL CANCER RECURRENT
     Dosage: 400 MG/DAILY, PO, 300 MG/DAILY, 300 MG/DAILYPO
     Route: 048
     Dates: start: 20080304, end: 20080317
  4. CARBOPLATIN [Suspect]
     Indication: OVARIAN EPITHELIAL CANCER RECURRENT
     Dosage: 425 MG, IV, 340 MG, IV, 340 MG, IV
     Route: 042
     Dates: start: 20080122, end: 20080122
  5. CARBOPLATIN [Suspect]
     Indication: OVARIAN EPITHELIAL CANCER RECURRENT
     Dosage: 425 MG, IV, 340 MG, IV, 340 MG, IV
     Route: 042
     Dates: start: 20080211, end: 20080211
  6. CARBOPLATIN [Suspect]
     Indication: OVARIAN EPITHELIAL CANCER RECURRENT
     Dosage: 425 MG, IV, 340 MG, IV, 340 MG, IV
     Route: 042
     Dates: start: 20080304, end: 20080304
  7. PACLITAXEL [Suspect]
     Indication: OVARIAN EPITHELIAL CANCER RECURRENT
     Dosage: 300 MG, IV, 230 MG, IV, 230 MG, IV
     Route: 042
     Dates: start: 20080122, end: 20080122
  8. PACLITAXEL [Suspect]
     Indication: OVARIAN EPITHELIAL CANCER RECURRENT
     Dosage: 300 MG, IV, 230 MG, IV, 230 MG, IV
     Route: 042
     Dates: start: 20080211, end: 20080211
  9. PACLITAXEL [Suspect]
     Indication: OVARIAN EPITHELIAL CANCER RECURRENT
     Dosage: 300 MG, IV, 230 MG, IV, 230 MG, IV
     Route: 042
     Dates: start: 20080304, end: 20080304
  10. MG OXIDE [Concomitant]
  11. METOCLOPRAMIDE HYDROCHLORIDE [Concomitant]
  12. ONDANSETRON HCL [Concomitant]
  13. PREDNISOLONE [Concomitant]

REACTIONS (19)
  - ASTHENIA [None]
  - BALANCE DISORDER [None]
  - BLOOD THYROID STIMULATING HORMONE INCREASED [None]
  - CEREBRAL ATROPHY [None]
  - CONSTIPATION [None]
  - DEHYDRATION [None]
  - DIZZINESS [None]
  - DYSPNOEA [None]
  - FATIGUE [None]
  - FIBRIN D DIMER INCREASED [None]
  - HYPERMAGNESAEMIA [None]
  - NAUSEA [None]
  - NEUROTOXICITY [None]
  - ORAL FUNGAL INFECTION [None]
  - PARAESTHESIA [None]
  - POLYNEUROPATHY [None]
  - SYNCOPE [None]
  - THROMBOCYTOPENIA [None]
  - VOMITING [None]
